FAERS Safety Report 13334920 (Version 2)
Quarter: 2017Q1

REPORT INFORMATION
  Report Type: Spontaneous
  Country: US (occurrence: US)
  Receive Date: 20170314
  Receipt Date: 20170329
  Transmission Date: 20170428
  Serious: Yes (Other)
  Sender: FDA-Public Use
  Company Number: US-PFIZER INC-2017104015

PATIENT
  Age: 48 Year
  Sex: Female

DRUGS (1)
  1. GABAPENTIN. [Suspect]
     Active Substance: GABAPENTIN
     Dosage: 1500 MG, DAILY

REACTIONS (6)
  - Vomiting [Recovered/Resolved]
  - Asthenia [Recovered/Resolved]
  - Nystagmus [Recovered/Resolved]
  - Toxicity to various agents [Recovered/Resolved]
  - Nausea [Recovered/Resolved]
  - Lethargy [Recovered/Resolved]
